FAERS Safety Report 17250964 (Version 2)
Quarter: 2020Q1

REPORT INFORMATION
  Report Type: Spontaneous
  Country: GB (occurrence: GB)
  Receive Date: 20200109
  Receipt Date: 20200316
  Transmission Date: 20200409
  Serious: Yes (Life-Threatening, Hospitalization)
  Sender: FDA-Public Use
  Company Number: GB-ACCORD-168403

PATIENT
  Age: 37 Year
  Sex: Male
  Weight: 145 kg

DRUGS (12)
  1. CYCLOPHOSPHAMIDE/CYCLOPHOSPHAMIDE MONOHYDRATE [Concomitant]
     Active Substance: CYCLOPHOSPHAMIDE
  2. CYTARABINE/CYTARABINE HYDROCHLORIDE/CYTARABINE OCFOSFATE [Concomitant]
     Active Substance: CYTARABINE
  3. FOLINIC ACID [Concomitant]
     Active Substance: LEUCOVORIN
     Dosage: 3 HOURLY INTERVALS FOR FIRST 12 HOURS THEN 6 HOURLY.
  4. SODIUM CHLORIDE. [Concomitant]
     Active Substance: SODIUM CHLORIDE
     Dosage: 0.45%+GLUCOSE 2.5%
  5. RITUXIMAB. [Concomitant]
     Active Substance: RITUXIMAB
  6. ACICLOVIR [Concomitant]
     Active Substance: ACYCLOVIR
  7. SODIUM BICARBONATE. [Concomitant]
     Active Substance: SODIUM BICARBONATE
     Dosage: 150MMOL
     Dates: start: 20191208, end: 20191208
  8. ONDANSETRON [Concomitant]
     Active Substance: ONDANSETRON
  9. METHOTREXATE. [Suspect]
     Active Substance: METHOTREXATE
     Indication: BURKITT^S LYMPHOMA
     Dosage: 7000 MG + 820 MG
     Route: 042
     Dates: start: 20191208, end: 20191209
  10. DOXORUBICIN [Concomitant]
     Active Substance: DOXORUBICIN
  11. VINCRISTINE [Concomitant]
     Active Substance: VINCRISTINE
  12. POTASSIUM [Concomitant]
     Active Substance: POTASSIUM

REACTIONS (4)
  - Pleural effusion [Recovered/Resolved]
  - Fluid balance positive [Recovered/Resolved]
  - Acute kidney injury [Recovered/Resolved]
  - Blood creatinine increased [Recovered/Resolved]

NARRATIVE: CASE EVENT DATE: 20191208
